FAERS Safety Report 8010206-0 (Version None)
Quarter: 2011Q4

REPORT INFORMATION
  Report Type: 
  Country: None (occurrence: None)
  Receive Date: 20111221
  Receipt Date: 20111212
  Transmission Date: 20120403
  Serious: Yes (Other)
  Sender: FDA-Public Use
  Company Number: 2011SP001217

PATIENT
  Age: 21 Year
  Sex: Female
  Weight: 134 kg

DRUGS (12)
  1. CEPHALEXIN [Concomitant]
  2. LEVOTHYROXINE SODIUM [Concomitant]
  3. CITALOPRAM [Concomitant]
  4. LEVOTHYROXINE SODIUM [Concomitant]
  5. AMOXICILLIN [Suspect]
     Indication: PRODUCT USED FOR UNKNOWN INDICATION
     Dosage: 500 MG;TID
     Dates: start: 20090226, end: 20090304
  6. CITALOPRAM [Concomitant]
  7. DIPROBASE [Concomitant]
  8. SODIUM BICARBONATE [Concomitant]
  9. CITALOPRAM [Concomitant]
  10. DOXYCYCLINE [Concomitant]
  11. IMPLANON [Suspect]
     Indication: CONTRACEPTION
     Dosage: 68 MG;SC
     Route: 058
     Dates: start: 20080818
  12. ZOPICLONE [Concomitant]

REACTIONS (6)
  - CAESAREAN SECTION [None]
  - BLOOD THYROID STIMULATING HORMONE INCREASED [None]
  - DEVICE DISLOCATION [None]
  - PREGNANCY WITH IMPLANT CONTRACEPTIVE [None]
  - ABDOMINAL PAIN UPPER [None]
  - DEVICE INEFFECTIVE [None]
